FAERS Safety Report 10196132 (Version 1)
Quarter: 2014Q2

REPORT INFORMATION
  Report Type: Spontaneous
  Country: IT (occurrence: IT)
  Receive Date: 20140527
  Receipt Date: 20140527
  Transmission Date: 20141212
  Serious: Yes (Hospitalization)
  Sender: FDA-Public Use
  Company Number: IT-RANBAXY-2014RR-81605

PATIENT
  Age: 30 Year
  Sex: Female
  Weight: 65 kg

DRUGS (2)
  1. ALPRAZOLAM [Suspect]
     Indication: PRODUCT USED FOR UNKNOWN INDICATION
     Dosage: 10 MG COMPLETE
     Route: 065
  2. RISPERIDONE [Suspect]
     Indication: DEPRESSION
     Dosage: 20 MG, COMPLETE
     Route: 065

REACTIONS (1)
  - Suicide attempt [Recovered/Resolved]
